FAERS Safety Report 16670257 (Version 3)
Quarter: 2020Q4

REPORT INFORMATION
  Report Type: Report from Study
  Country: US (occurrence: US)
  Receive Date: 20190805
  Receipt Date: 20201231
  Transmission Date: 20210113
  Serious: Yes (Hospitalization, Other)
  Sender: FDA-Public Use
  Company Number: US-SHIRE-US201921400AA

PATIENT
  Sex: Male

DRUGS (2)
  1. HUMAN NORMAL IMMUNOGLOBULIN; LIQUID [Suspect]
     Active Substance: HUMAN IMMUNOGLOBULIN G
     Indication: PRIMARY IMMUNODEFICIENCY SYNDROME
     Dosage: 65 GRAM, EVERY 21 DAYS
     Route: 042
  2. HUMAN NORMAL IMMUNOGLOBULIN; LIQUID [Suspect]
     Active Substance: HUMAN IMMUNOGLOBULIN G
     Dosage: 60 GRAM
     Route: 042
     Dates: start: 201902

REACTIONS (10)
  - Incorrect dose administered [Unknown]
  - Inability to afford medication [Unknown]
  - Joint injury [Unknown]
  - Illness [None]
  - Renal disorder [Unknown]
  - Fall [Unknown]
  - Pyrexia [Unknown]
  - Wrist fracture [Unknown]
  - Rheumatoid arthritis [Unknown]
  - Cardiac disorder [Unknown]
